FAERS Safety Report 9294681 (Version 3)
Quarter: 2013Q3

REPORT INFORMATION
  Report Type: Spontaneous
  Country: US (occurrence: None)
  Receive Date: 20130514
  Receipt Date: 20130916
  Transmission Date: 20140515
  Serious: Yes (Other)
  Sender: FDA-Public Use
  Company Number: JPI-P-031458

PATIENT
  Age: 41 Year
  Sex: Female

DRUGS (2)
  1. XYREM (500 MILLIGRAM/MILLILITERS, SOLUTION) (SODIUM OXYBATE) [Suspect]
     Indication: CATAPLEXY
     Dosage: 4.5 GM (2.25 GM, 2 IN 1 D), ORAL
     Route: 048
     Dates: start: 20030903
  2. MODAFINIL [Concomitant]

REACTIONS (8)
  - Sleep apnoea syndrome [None]
  - Bruxism [None]
  - Periodic limb movement disorder [None]
  - Nasal dryness [None]
  - Toothache [None]
  - Tooth disorder [None]
  - Pain [None]
  - Infection [None]
